FAERS Safety Report 23716718 (Version 2)
Quarter: 2024Q2

REPORT INFORMATION
  Report Type: Spontaneous
  Country: BR (occurrence: BR)
  Receive Date: 20240408
  Receipt Date: 20240626
  Transmission Date: 20240715
  Serious: Yes (Other)
  Sender: FDA-Public Use
  Company Number: BR-JNJFOC-20240125014

PATIENT
  Age: 65 Year
  Sex: Male
  Weight: 140 kg

DRUGS (3)
  1. STELARA [Suspect]
     Active Substance: USTEKINUMAB
     Indication: Psoriasis
     Route: 058
     Dates: start: 201910
  2. ROSUVASTATIN [Concomitant]
     Active Substance: ROSUVASTATIN
     Indication: Dyslipidaemia
     Route: 048
  3. CHOLECALCIFEROL [Concomitant]
     Active Substance: CHOLECALCIFEROL
     Indication: Vitamin D deficiency
     Dosage: 7000 UI
     Route: 048

REACTIONS (3)
  - Pulmonary fibrosis [Unknown]
  - Psoriatic arthropathy [Unknown]
  - Hypersensitivity pneumonitis [Not Recovered/Not Resolved]

NARRATIVE: CASE EVENT DATE: 20230101
